FAERS Safety Report 6061452-7 (Version None)
Quarter: 2009Q1

REPORT INFORMATION
  Report Type: 
  Country: None (occurrence: None)
  Receive Date: 20090129
  Receipt Date: 20090129
  Transmission Date: 20090719
  Serious: Yes (Other)
  Sender: FDA-Public Use
  Company Number: None

PATIENT
  Age: 53 Year
  Sex: Female
  Weight: 63.5036 kg

DRUGS (2)
  1. LEVAQUIN [Suspect]
     Indication: DIVERTICULITIS
     Dosage: 500MG QDAY PO
     Route: 048
     Dates: start: 20081016, end: 20081020
  2. FLAGYL [Concomitant]

REACTIONS (7)
  - AFFECTIVE DISORDER [None]
  - APHASIA [None]
  - CRYING [None]
  - DELUSION [None]
  - HALLUCINATION [None]
  - MOOD ALTERED [None]
  - PSYCHOTIC BEHAVIOUR [None]
